FAERS Safety Report 21130452 (Version 2)
Quarter: 2022Q3

REPORT INFORMATION
  Report Type: Spontaneous
  Country: US (occurrence: US)
  Receive Date: 20220726
  Receipt Date: 20220919
  Transmission Date: 20221027
  Serious: Yes (Other)
  Sender: FDA-Public Use
  Company Number: US-JNJFOC-20220736832

PATIENT
  Age: 68 Year
  Sex: Male

DRUGS (1)
  1. AVOBENZONE\HOMOSALATE\OCTISALATE\OCTOCRYLENE [Suspect]
     Active Substance: AVOBENZONE\HOMOSALATE\OCTISALATE\OCTOCRYLENE
     Indication: Prophylaxis against solar radiation
     Dosage: ^DAILY AND WEEKLY THROUGH SPRING AND SUMMER AND FALL
     Route: 061

REACTIONS (1)
  - Skin cancer [Unknown]

NARRATIVE: CASE EVENT DATE: 20210402
